FAERS Safety Report 10728180 (Version 1)
Quarter: 2015Q1

REPORT INFORMATION
  Report Type: Spontaneous
  Country: US (occurrence: US)
  Receive Date: 20150121
  Receipt Date: 20150121
  Transmission Date: 20150721
  Serious: Yes (Hospitalization, Other)
  Sender: FDA-Public Use
  Company Number: US-B.I. PHARMACEUTICALS,INC./RIDGEFIELD-2015-BI-01951BP

PATIENT
  Age: 91 Year
  Sex: Female

DRUGS (2)
  1. DULCOLAX [Suspect]
     Active Substance: BISACODYL OR DOCUSATE SODIUM
     Indication: CONSTIPATION
     Route: 048
     Dates: start: 2013, end: 201501
  2. DULCOLAX TABLETS FOR WOMEN [Suspect]
     Active Substance: BISACODYL
     Indication: CONSTIPATION
     Route: 048
     Dates: start: 20150109, end: 20150109

REACTIONS (5)
  - Hand fracture [Recovered/Resolved]
  - Fall [Recovered/Resolved]
  - Abdominal pain upper [Not Recovered/Not Resolved]
  - Pollakiuria [Not Recovered/Not Resolved]
  - Hip fracture [Recovered/Resolved]

NARRATIVE: CASE EVENT DATE: 20141006
